FAERS Safety Report 26050988 (Version 1)
Quarter: 2025Q4

REPORT INFORMATION
  Report Type: Report from Study
  Country: US (occurrence: US)
  Receive Date: 20251117
  Receipt Date: 20251117
  Transmission Date: 20260117
  Serious: Yes (Other)
  Sender: ABBVIE
  Company Number: US-ABBVIE-6544448

PATIENT
  Age: 51 Year
  Sex: Female

DRUGS (2)
  1. SKYRIZI [Suspect]
     Active Substance: RISANKIZUMAB-RZAA
     Indication: Crohn^s disease
     Dosage: STOP DATE 2025
     Route: 058
     Dates: start: 20250407
  2. SKYRIZI [Suspect]
     Active Substance: RISANKIZUMAB-RZAA
     Dosage: RESTARTED
     Route: 058
     Dates: start: 2025

REACTIONS (1)
  - Hip arthroplasty [Recovering/Resolving]

NARRATIVE: CASE EVENT DATE: 20251017
